FAERS Safety Report 16498975 (Version 1)
Quarter: 2019Q2

REPORT INFORMATION
  Report Type: Spontaneous
  Country: US (occurrence: US)
  Receive Date: 20190630
  Receipt Date: 20190630
  Transmission Date: 20190711
  Serious: No
  Sender: FDA-Public Use
  Company Number: US-TEVA-2019-US-1064286

PATIENT
  Sex: Male

DRUGS (3)
  1. CETIRIZINE [Concomitant]
     Active Substance: CETIRIZINE HYDROCHLORIDE
     Indication: MAST CELL ACTIVATION SYNDROME
     Route: 065
  2. NORTRIPTYLINE [Suspect]
     Active Substance: NORTRIPTYLINE
     Indication: MAST CELL ACTIVATION SYNDROME
     Dosage: CONTAINING THE EXCIPIENTS BENZYL ALCOHOL AND DYES
     Route: 065
  3. CANNABIS [Concomitant]
     Active Substance: CANNABIS SATIVA SUBSP. INDICA TOP
     Indication: MAST CELL ACTIVATION SYNDROME
     Route: 065

REACTIONS (2)
  - Feeling abnormal [Recovered/Resolved]
  - Reaction to excipient [Recovered/Resolved]
